FAERS Safety Report 20649171 (Version 2)
Quarter: 2023Q2

REPORT INFORMATION
  Report Type: Spontaneous
  Country: US (occurrence: US)
  Receive Date: 20220329
  Receipt Date: 20230606
  Transmission Date: 20230721
  Serious: No
  Sender: FDA-Public Use
  Company Number: US-PFIZER INC-2021753729

PATIENT
  Age: 59 Year
  Sex: Male
  Weight: 102.05 kg

DRUGS (1)
  1. INLYTA [Suspect]
     Active Substance: AXITINIB
     Indication: Renal cell carcinoma
     Dosage: 5 MG, 2X/DAY(EVERY 12 HOURS)
     Route: 048
     Dates: start: 20210419

REACTIONS (5)
  - Dysphonia [Not Recovered/Not Resolved]
  - Oral pain [Recovering/Resolving]
  - Glossodynia [Not Recovered/Not Resolved]
  - Weight decreased [Recovering/Resolving]
  - Stomatitis [Recovering/Resolving]

NARRATIVE: CASE EVENT DATE: 20230504
